FAERS Safety Report 24360396 (Version 1)
Quarter: 2024Q3

REPORT INFORMATION
  Report Type: Spontaneous
  Country: DE (occurrence: DE)
  Receive Date: 20240925
  Receipt Date: 20240925
  Transmission Date: 20241016
  Serious: Yes (Other)
  Sender: AUROBINDO
  Company Number: DE-JNJFOC-20240919401

PATIENT
  Sex: Female
  Weight: 59 kg

DRUGS (5)
  1. AMLODIPINE [Suspect]
     Active Substance: AMLODIPINE BESYLATE
     Indication: Product used for unknown indication
     Dosage: UNK
     Route: 065
  2. MACITENTAN [Suspect]
     Active Substance: MACITENTAN
     Indication: Pulmonary arterial hypertension
     Dosage: 10 MILLIGRAM, DAILY
     Route: 048
     Dates: start: 20230208
  3. AMLODIPINE BESYLATE [Concomitant]
     Active Substance: AMLODIPINE BESYLATE
     Indication: Product used for unknown indication
     Dosage: UNK
     Route: 048
     Dates: start: 20230211
  4. NARATRIPTAN [Concomitant]
     Active Substance: NARATRIPTAN HYDROCHLORIDE
     Indication: Migraine
     Dosage: UNK
     Route: 048
  5. ADCIRCA [Concomitant]
     Active Substance: TADALAFIL
     Indication: Pulmonary arterial hypertension
     Dosage: UNK
     Route: 048
     Dates: start: 20230626

REACTIONS (2)
  - Hypotension [Recovered/Resolved with Sequelae]
  - Blood urea decreased [Not Recovered/Not Resolved]

NARRATIVE: CASE EVENT DATE: 20240801
